FAERS Safety Report 10052521 (Version 1)
Quarter: 2014Q2

REPORT INFORMATION
  Report Type: Spontaneous
  Country: US (occurrence: None)
  Receive Date: 20140401
  Receipt Date: 20140401
  Transmission Date: 20141212
  Serious: Yes (Other)
  Sender: FDA-Public Use
  Company Number: None

PATIENT
  Age: 80 Year
  Sex: Male
  Weight: 72.58 kg

DRUGS (7)
  1. ALL DAY ENERGY GREENS [Suspect]
     Indication: ASTHENIA
     Dosage: 1 TABLESPOON - MOUTH POWDER MIXED W/JUICE
     Dates: start: 20140115, end: 20140125
  2. OMEGA 3 [Concomitant]
  3. MULTI [Concomitant]
  4. B-12 [Concomitant]
  5. COQ 10 [Concomitant]
  6. PROBIOTICS [Concomitant]
  7. D3 [Concomitant]

REACTIONS (3)
  - Abdominal pain upper [None]
  - Diarrhoea [None]
  - Product formulation issue [None]
